FAERS Safety Report 25051849 (Version 1)
Quarter: 2025Q1

REPORT INFORMATION
  Report Type: Spontaneous
  Country: US (occurrence: None)
  Receive Date: 20250307
  Receipt Date: 20250307
  Transmission Date: 20250409
  Serious: Yes (Other)
  Sender: FDA-CTU
  Company Number: None

PATIENT
  Sex: Female
  Weight: 61.2 kg

DRUGS (2)
  1. ADDERALL [Suspect]
     Active Substance: AMPHETAMINE ASPARTATE\AMPHETAMINE SULFATE\DEXTROAMPHETAMINE SACCHARATE\DEXTROAMPHETAMINE SULFATE
     Dosage: FREQUENCY : DAILY;?
     Route: 048
  2. MODAFINIL [Suspect]
     Active Substance: MODAFINIL
     Dosage: FREQUENCY : DAILY;?
     Route: 048

REACTIONS (4)
  - Neurotoxicity [None]
  - Cardiotoxicity [None]
  - Feeling jittery [None]
  - Headache [None]
